FAERS Safety Report 25887543 (Version 1)
Quarter: 2025Q4

REPORT INFORMATION
  Report Type: Report from Study
  Country: US (occurrence: US)
  Receive Date: 20251007
  Receipt Date: 20251007
  Transmission Date: 20260118
  Serious: Yes (Hospitalization)
  Sender: ABBVIE
  Company Number: US-ABBVIE-6474551

PATIENT
  Age: 59 Year
  Sex: Female

DRUGS (1)
  1. RINVOQ [Suspect]
     Active Substance: UPADACITINIB
     Indication: Rheumatoid arthritis
     Dosage: FORM FORM: 15 MG, EXTENDED RELEASE TABLET
     Route: 048
     Dates: start: 20250814

REACTIONS (3)
  - Abdominal pain upper [Not Recovered/Not Resolved]
  - Basal cell naevus syndrome [Unknown]
  - Pain [Unknown]

NARRATIVE: CASE EVENT DATE: 20250101
